FAERS Safety Report 18063151 (Version 1)
Quarter: 2020Q3

REPORT INFORMATION
  Report Type: Spontaneous
  Country: US (occurrence: US)
  Receive Date: 20200724
  Receipt Date: 20200724
  Transmission Date: 20201103
  Serious: Yes (Other)
  Sender: FDA-Public Use
  Company Number: US-TEVA-2020-US-1803998

PATIENT
  Sex: Male

DRUGS (2)
  1. FLEXERIL [Suspect]
     Active Substance: CYCLOBENZAPRINE HYDROCHLORIDE
     Route: 065
  2. DIAZEPAM. [Suspect]
     Active Substance: DIAZEPAM
     Route: 065

REACTIONS (8)
  - Impatience [Unknown]
  - Insomnia [Unknown]
  - Cerebrovascular accident [Unknown]
  - Mood swings [Unknown]
  - Post-traumatic stress disorder [Not Recovered/Not Resolved]
  - Personality disorder [Not Recovered/Not Resolved]
  - Aggression [Unknown]
  - Mood altered [Unknown]
